FAERS Safety Report 17150776 (Version 1)
Quarter: 2019Q4

REPORT INFORMATION
  Report Type: Spontaneous
  Country: US (occurrence: US)
  Receive Date: 20191120
  Receipt Date: 20191120
  Transmission Date: 20200122
  Serious: Yes (Other)
  Sender: FDA-Public Use
  Company Number: None

PATIENT
  Age: 56 Year
  Sex: Male

DRUGS (22)
  1. CETIRIZINE [Concomitant]
     Active Substance: CETIRIZINE HYDROCHLORIDE
  2. SIMVASTATIN. [Concomitant]
     Active Substance: SIMVASTATIN
  3. ASCORBIC ACID. [Concomitant]
     Active Substance: ASCORBIC ACID
  4. FERROUS SULFATE. [Concomitant]
     Active Substance: FERROUS SULFATE
  5. CALTRATE WITH VITAMIN D [Concomitant]
     Active Substance: CALCIUM CARBONATE\CHOLECALCIFEROL
  6. NADOLOL. [Concomitant]
     Active Substance: NADOLOL
  7. SILDENAFIL. [Concomitant]
     Active Substance: SILDENAFIL
  8. BUPTOPION [Concomitant]
  9. OMEPRAZOLE. [Concomitant]
     Active Substance: OMEPRAZOLE
  10. BENEFIBER [Concomitant]
     Active Substance: STARCH, WHEAT
  11. MAGNESIUM OXIDE. [Concomitant]
     Active Substance: MAGNESIUM OXIDE
  12. VITAMIN B12 [Concomitant]
     Active Substance: CYANOCOBALAMIN
  13. GINKGO BILOBA [Concomitant]
     Active Substance: GINKGO
  14. GLIPIZIDE. [Concomitant]
     Active Substance: GLIPIZIDE
  15. AMBRISENTAN 10MG TABLETS 30/BO: 10MG [Suspect]
     Active Substance: AMBRISENTAN
     Route: 048
     Dates: start: 201303
  16. ASTELIN [Concomitant]
     Active Substance: AZELASTINE HYDROCHLORIDE
  17. MONTELUKAST [Concomitant]
     Active Substance: MONTELUKAST SODIUM
  18. NORCO [Concomitant]
     Active Substance: ACETAMINOPHEN\HYDROCODONE BITARTRATE
  19. SUORALFATE [Concomitant]
  20. METFORMIN [Concomitant]
     Active Substance: METFORMIN HYDROCHLORIDE
  21. ALIGN [Concomitant]
     Active Substance: BIFIDOBACTERIUM LONGUM SUBSP. INFANTIS
  22. LISINOPRIL. [Concomitant]
     Active Substance: LISINOPRIL

REACTIONS (2)
  - Dyspnoea [None]
  - Product substitution issue [None]
